FAERS Safety Report 22104314 (Version 2)
Quarter: 2023Q2

REPORT INFORMATION
  Report Type: Spontaneous
  Country: JP (occurrence: JP)
  Receive Date: 20230316
  Receipt Date: 20230413
  Transmission Date: 20230721
  Serious: Yes (Life-Threatening, Other)
  Sender: FDA-Public Use
  Company Number: JP-BoehringerIngelheim-2023-BI-224845

PATIENT
  Age: 39 Year
  Sex: Male
  Weight: 67 kg

DRUGS (3)
  1. OFEV [Suspect]
     Active Substance: NINTEDANIB
     Indication: Interstitial lung disease
     Route: 048
  2. OXYGEN [Concomitant]
     Active Substance: OXYGEN
     Indication: Product used for unknown indication
     Route: 065
  3. PIRFENIDONE [Concomitant]
     Active Substance: PIRFENIDONE
     Indication: Interstitial lung disease
     Route: 048

REACTIONS (10)
  - Pulmonary hypertension [Recovered/Resolved]
  - Interstitial lung disease [Recovered/Resolved]
  - Bacterial sepsis [Unknown]
  - Right ventricular failure [Not Recovered/Not Resolved]
  - Pneumothorax [Unknown]
  - Pneumothorax [Recovering/Resolving]
  - Pulmonary hypertension [Not Recovered/Not Resolved]
  - Drug ineffective [Unknown]
  - Pseudomonas infection [Recovered/Resolved]
  - Procedural haemorrhage [Unknown]
